FAERS Safety Report 10039731 (Version 3)
Quarter: 2014Q1

REPORT INFORMATION
  Report Type: Spontaneous
  Country: DE (occurrence: DE)
  Receive Date: 20140326
  Receipt Date: 20140331
  Transmission Date: 20141002
  Serious: Yes (Hospitalization, Other)
  Sender: FDA-Public Use
  Company Number: DE-JNJFOC-20140305199

PATIENT
  Age: 82 Year
  Sex: Male
  Weight: 100 kg

DRUGS (8)
  1. XARELTO [Suspect]
     Indication: CEREBROVASCULAR ACCIDENT PROPHYLAXIS
     Route: 048
     Dates: start: 2013, end: 20140131
  2. XARELTO [Suspect]
     Indication: ATRIAL FIBRILLATION
     Route: 048
     Dates: start: 2013, end: 20140131
  3. BISOPROLOL [Concomitant]
     Indication: ATRIAL FIBRILLATION
     Route: 065
  4. TORASEMID [Concomitant]
     Indication: HYPERTENSION
     Route: 065
  5. ALLOPURINOL [Concomitant]
     Indication: HYPERURICAEMIA
     Route: 065
  6. L-THYROXIN [Concomitant]
     Indication: THYROID DISORDER
     Route: 065
  7. ENALAPRIL [Concomitant]
     Indication: HYPERTENSION
     Dosage: 10/25
     Route: 065
  8. EFEROX [Concomitant]
     Indication: PRODUCT USED FOR UNKNOWN INDICATION
     Dosage: 10/25
     Route: 065

REACTIONS (6)
  - Haematemesis [Recovered/Resolved]
  - Melaena [Recovered/Resolved]
  - Upper gastrointestinal haemorrhage [Recovered/Resolved]
  - Renal failure acute [Unknown]
  - Acute myocardial infarction [Unknown]
  - Pneumonia aspiration [Unknown]
